FAERS Safety Report 8417498-4 (Version None)
Quarter: 2012Q2

REPORT INFORMATION
  Report Type: 
  Country: None (occurrence: None)
  Receive Date: 20120606
  Receipt Date: 20120531
  Transmission Date: 20120825
  Serious: Yes (Hospitalization, Other)
  Sender: FDA-Public Use
  Company Number: US-B.I. PHARMACEUTICALS,INC./RIDGEFIELD-2012-EU-02955GD

PATIENT
  Age: 79 Year
  Sex: Female

DRUGS (3)
  1. CLONIDINE [Suspect]
     Dosage: 0.9 MG
     Route: 048
  2. DILTIAZEM [Suspect]
     Dosage: 360 MG
     Route: 048
  3. DIGOXIN [Suspect]
     Dosage: 0.125 MG
     Route: 048

REACTIONS (9)
  - PRESYNCOPE [None]
  - NODAL RHYTHM [None]
  - LEFT ATRIAL DILATATION [None]
  - ASTHENIA [None]
  - SINUS ARRHYTHMIA [None]
  - ATRIOVENTRICULAR BLOCK SECOND DEGREE [None]
  - INCORRECT DOSE ADMINISTERED [None]
  - SINUS BRADYCARDIA [None]
  - MALAISE [None]
